FAERS Safety Report 5392002-6 (Version None)
Quarter: 2007Q3

REPORT INFORMATION
  Report Type: 
  Country: None (occurrence: None)
  Receive Date: 20070720
  Receipt Date: 20070709
  Transmission Date: 20080115
  Serious: Yes (Hospitalization)
  Sender: FDA-Public Use
  Company Number: US-JNJFOC-20070702256

PATIENT
  Sex: Female

DRUGS (4)
  1. INVEGA [Suspect]
     Indication: POST-TRAUMATIC STRESS DISORDER
     Route: 048
  2. INVEGA [Suspect]
     Indication: SCHIZOAFFECTIVE DISORDER
     Route: 048
  3. KLONOPIN [Concomitant]
     Indication: ANXIETY
  4. NEURONTIN [Concomitant]

REACTIONS (2)
  - HEART RATE INCREASED [None]
  - SUICIDE ATTEMPT [None]
